FAERS Safety Report 10541942 (Version 2)
Quarter: 2015Q1

REPORT INFORMATION
  Report Type: Spontaneous
  Country: IT (occurrence: IT)
  Receive Date: 20141024
  Receipt Date: 20150210
  Transmission Date: 20150720
  Serious: Yes (Hospitalization)
  Sender: FDA-Public Use
  Company Number: IT-PFIZER INC-2014294313

PATIENT
  Age: 48 Year
  Sex: Female

DRUGS (5)
  1. MABTHERA [Suspect]
     Active Substance: RITUXIMAB
     Indication: SCLERODERMA
     Dosage: 1 DF, CYCLIC
     Route: 042
     Dates: start: 20140101, end: 20141020
  2. METHOTREXATE [Suspect]
     Active Substance: METHOTREXATE
     Indication: SCLERODERMA
     Dosage: 1 DF, CYCLIC
     Route: 030
     Dates: start: 20130101, end: 20141020
  3. FOLINA [Concomitant]
     Active Substance: FOLIC ACID
  4. ESOMEPRAZOLE SODIUM. [Concomitant]
     Active Substance: ESOMEPRAZOLE SODIUM
  5. MEDROL [Suspect]
     Active Substance: METHYLPREDNISOLONE
     Indication: SCLERODERMA
     Dosage: 1 DF, DAILY
     Route: 048
     Dates: start: 20120101, end: 20141020

REACTIONS (1)
  - Abdominal pain upper [Recovering/Resolving]

NARRATIVE: CASE EVENT DATE: 20141020
